FAERS Safety Report 17926867 (Version 4)
Quarter: 2020Q4

REPORT INFORMATION
  Report Type: Report from Study
  Country: None (occurrence: US)
  Receive Date: 20200623
  Receipt Date: 20201006
  Transmission Date: 20210113
  Serious: Yes (Hospitalization, Other)
  Sender: FDA-Public Use
  Company Number: US-ABBVIE-20K-163-3451724-00

PATIENT
  Age: 67 Year
  Sex: Male

DRUGS (2)
  1. HUMIRA [Suspect]
     Active Substance: ADALIMUMAB
     Route: 058
  2. HUMIRA [Suspect]
     Active Substance: ADALIMUMAB
     Indication: RHEUMATOID ARTHRITIS
     Route: 058

REACTIONS (7)
  - Vascular occlusion [Unknown]
  - Haemorrhage [Unknown]
  - Polyp [Unknown]
  - Anaemia [Unknown]
  - Hypotension [Recovered/Resolved]
  - Ulcer [Unknown]
  - Loss of consciousness [Unknown]

NARRATIVE: CASE EVENT DATE: 202004
